FAERS Safety Report 20775042 (Version 1)
Quarter: 2022Q2

REPORT INFORMATION
  Report Type: Report from Study
  Country: GB (occurrence: None)
  Receive Date: 20220502
  Receipt Date: 20220502
  Transmission Date: 20220721
  Serious: Yes (Other)
  Sender: FDA-Public Use
  Company Number: GB-Spark Therapeutics, Inc.-GB-SPK-21-00104

PATIENT
  Age: 14 Year
  Sex: Female
  Weight: 90.5 kg

DRUGS (2)
  1. VORETIGENE NEPARVOVEC [Suspect]
     Active Substance: VORETIGENE NEPARVOVEC
     Indication: Leber^s congenital amaurosis
     Dates: start: 20210609, end: 20210609
  2. VORETIGENE NEPARVOVEC [Suspect]
     Active Substance: VORETIGENE NEPARVOVEC
     Indication: Leber^s congenital amaurosis
     Dates: start: 20210609, end: 20210609

REACTIONS (3)
  - Iridocyclitis [Recovered/Resolved]
  - Intraocular pressure increased [Recovering/Resolving]
  - Eye swelling [Recovering/Resolving]

NARRATIVE: CASE EVENT DATE: 20211101
